FAERS Safety Report 25655480 (Version 1)
Quarter: 2025Q3

REPORT INFORMATION
  Report Type: Spontaneous
  Country: US (occurrence: None)
  Receive Date: 20250807
  Receipt Date: 20250807
  Transmission Date: 20251021
  Serious: No
  Sender: FDA-CTU
  Company Number: None

PATIENT
  Age: 21 Year
  Sex: Female

DRUGS (6)
  1. NEXPLANON [Suspect]
     Active Substance: ETONOGESTREL
  2. DESVENLAFAXINE ER [Concomitant]
     Active Substance: DESVENLAFAXINE SUCCINATE
  3. DEXTROAMPHETAMINE [Concomitant]
     Active Substance: DEXTROAMPHETAMINE
  4. Salt Combo Testosterone [Concomitant]
  5. ESTRADIOL CYPIONATE [Concomitant]
     Active Substance: ESTRADIOL CYPIONATE
  6. LUMRYZ [Concomitant]
     Active Substance: SODIUM OXYBATE

REACTIONS (6)
  - Contraceptive implant [None]
  - Implant site pain [None]
  - Implant site paraesthesia [None]
  - Device dislocation [None]
  - Nerve compression [None]
  - Pain in extremity [None]
